FAERS Safety Report 4940870-1 (Version None)
Quarter: 2006Q1

REPORT INFORMATION
  Report Type: 
  Country: None (occurrence: None)
  Receive Date: 20060307
  Receipt Date: 20060220
  Transmission Date: 20060701
  Serious: Yes (Hospitalization, Other)
  Sender: FDA-Public Use
  Company Number: 2006AL000501

PATIENT
  Age: 56 Year
  Sex: Female

DRUGS (2)
  1. HYDROCHLOROTHIAZIDE TABLETS USP, 50 MG (PUREPAC) (HYDROCHLOROTHIAZIDE [Suspect]
     Indication: HYPERTENSION
     Dosage: 25 MG; PO
     Route: 048
  2. ALBUTEROL [Concomitant]

REACTIONS (7)
  - BLOOD PRESSURE SYSTOLIC DECREASED [None]
  - DILATATION VENTRICULAR [None]
  - ELECTROCARDIOGRAM ST SEGMENT DEPRESSION [None]
  - NON-CARDIOGENIC PULMONARY OEDEMA [None]
  - PULMONARY ARTERY DILATATION [None]
  - SIMILAR REACTION ON PREVIOUS EXPOSURE TO DRUG [None]
  - VENTRICULAR HYPERTROPHY [None]
